FAERS Safety Report 25859653 (Version 2)
Quarter: 2025Q4

REPORT INFORMATION
  Report Type: Spontaneous
  Country: EU (occurrence: EU)
  Receive Date: 20250929
  Receipt Date: 20251118
  Transmission Date: 20260118
  Serious: Yes (Congenital Anomaly, Other)
  Sender: TEVA
  Company Number: EU-TEVA-VS-3375972

PATIENT
  Sex: Female

DRUGS (1)
  1. AJOVY [Suspect]
     Active Substance: FREMANEZUMAB-VFRM
     Indication: Product used for unknown indication
     Dosage: 225/1.5MG/ML
     Route: 064

REACTIONS (2)
  - Cardiomyopathy neonatal [Unknown]
  - Foetal exposure during pregnancy [Unknown]
